FAERS Safety Report 5734370-9 (Version None)
Quarter: 2008Q2

REPORT INFORMATION
  Report Type: 
  Country: None (occurrence: None)
  Receive Date: 20080512
  Receipt Date: 20080505
  Transmission Date: 20081010
  Serious: Yes (Hospitalization, Disabling, Other)
  Sender: FDA-Public Use
  Company Number: US-ELI LILLY & COMPANY-US_0510122672

PATIENT
  Sex: Female
  Weight: 134.55 kg

DRUGS (25)
  1. ZYPREXA [Suspect]
     Dosage: UNK, UNKNOWN
     Dates: start: 19970207, end: 20031101
  2. ZYPREXA [Suspect]
     Dosage: 2.5 MG, OTHER
     Dates: start: 19990511, end: 19990525
  3. ZYPREXA [Suspect]
     Dosage: 2.5 MG, DAILY (1/D)
     Dates: start: 20000330, end: 20000516
  4. ZYPREXA [Suspect]
     Dosage: 5 MG, DAILY (1/D)
     Dates: start: 20000516, end: 20001130
  5. ZYPREXA [Suspect]
     Dosage: 5 MG, 2/D
     Dates: start: 20001130, end: 20011129
  6. ZYPREXA [Suspect]
     Dosage: 2.5 MG, DAILY (1/D)
     Dates: start: 20011129
  7. ZYPREXA [Suspect]
     Dosage: 20 MG, UNK
  8. ABILIFY [Concomitant]
     Dosage: 10 MG, DAILY (1/D)
     Dates: start: 20031101, end: 20050701
  9. ABILIFY [Concomitant]
     Dosage: 30 MG, DAILY (1/D)
     Dates: start: 20031120, end: 20031204
  10. ABILIFY [Concomitant]
     Dosage: 20 MG, DAILY (1/D)
     Dates: start: 20031204, end: 20040206
  11. ABILIFY [Concomitant]
     Dosage: 15 MG, DAILY (1/D)
     Dates: start: 20040206
  12. ABILIFY [Concomitant]
     Dosage: 5 MG, DAILY (1/D)
     Dates: end: 20050609
  13. ABILIFY [Concomitant]
     Dates: start: 19970101
  14. PROZAC [Concomitant]
     Dosage: 40 MG, DAILY (1/D)
  15. PROZAC [Concomitant]
     Dosage: 20 MG, DAILY (1/D)
     Dates: start: 20040429, end: 20040608
  16. PROZAC [Concomitant]
     Dosage: 40 MG, DAILY (1/D)
     Dates: start: 20040608
  17. XANAX                                   /USA/ [Concomitant]
     Dosage: 1.5 MG, UNK
  18. XANAX                                   /USA/ [Concomitant]
     Dosage: 0.5 MG, 3/D
     Dates: start: 20031120
  19. CITALOPRAM HYDROBROMIDE [Concomitant]
     Dates: start: 20050101
  20. PREDNISONE TAB [Concomitant]
     Dates: start: 20070801
  21. MULTI-VITAMIN [Concomitant]
  22. CALCIUM CARBONATE [Concomitant]
  23. MAGNESIUM SULFATE [Concomitant]
  24. ZINC [Concomitant]
  25. COENZYME Q10 [Concomitant]

REACTIONS (8)
  - ATRIAL FIBRILLATION [None]
  - ATRIAL FLUTTER [None]
  - CARDIAC FAILURE CONGESTIVE [None]
  - DIABETES MELLITUS INADEQUATE CONTROL [None]
  - EYE DISORDER [None]
  - FALL [None]
  - OBESITY [None]
  - WEIGHT INCREASED [None]
